FAERS Safety Report 8937137 (Version 1)
Quarter: 2012Q4

REPORT INFORMATION
  Report Type: Spontaneous
  Country: AU (occurrence: None)
  Receive Date: 20121123
  Receipt Date: 20121123
  Transmission Date: 20130627
  Serious: Yes (Other)
  Sender: FDA-Public Use
  Company Number: 2012000251

PATIENT
  Age: 54 Year
  Sex: Male

DRUGS (8)
  1. ACEON [Suspect]
     Indication: HYPERTENSION
     Route: 048
     Dates: start: 20121016, end: 20121024
  2. ACEON [Suspect]
     Indication: HYPERTENSION
     Route: 048
     Dates: start: 20121103
  3. DIABEX (METFORMIN HYDROCHLORIDE) [Concomitant]
  4. ENCLEP (AMITRIPTYLINE HYDROCHLORIDE) [Concomitant]
  5. MINAX (METOPROLOL TARTRATE) [Concomitant]
  6. MOBIC (MELOXICAM) [Concomitant]
  7. THYROXINE (LEVOTHYROXINE SODIUM) [Concomitant]
  8. VALPRO (VALPROATE SODIUM) [Concomitant]

REACTIONS (2)
  - Rash pruritic [None]
  - Hypersensitivity [None]
